FAERS Safety Report 8208154-6 (Version None)
Quarter: 2012Q1

REPORT INFORMATION
  Report Type: 
  Country: None (occurrence: None)
  Receive Date: 20120314
  Receipt Date: 20120306
  Transmission Date: 20120608
  Serious: Yes (Other)
  Sender: FDA-Public Use
  Company Number: PHFR2012GB001353

PATIENT
  Age: 64 Year
  Sex: Male

DRUGS (4)
  1. FRISIUM [Concomitant]
     Dosage: UNK UKN, UNK
  2. GABITRIL [Concomitant]
     Dosage: UNK UKN, UNK
  3. TEGRETOL-XR [Suspect]
     Indication: EPILEPSY
     Dosage: 400 MG, UNK
  4. REMION [Concomitant]
     Dosage: UNK UKN, UNK

REACTIONS (3)
  - BALANCE DISORDER [None]
  - FALL [None]
  - LOSS OF CONSCIOUSNESS [None]
